FAERS Safety Report 7095682-2 (Version None)
Quarter: 2010Q4

REPORT INFORMATION
  Report Type: 
  Country: None (occurrence: None)
  Receive Date: 20101111
  Receipt Date: 20101103
  Transmission Date: 20110411
  Serious: Yes (Other)
  Sender: FDA-Public Use
  Company Number: US-AMGEN GMBH-QUU442648

PATIENT

DRUGS (4)
  1. NPLATE [Suspect]
     Indication: IDIOPATHIC THROMBOCYTOPENIC PURPURA
     Dosage: 250 A?G, UNK
     Dates: start: 20090331, end: 20090414
  2. NPLATE [Suspect]
     Indication: THROMBOCYTOPENIA
     Dates: start: 20090331, end: 20090414
  3. IMMU-G [Concomitant]
     Dosage: UNK UNK, UNK
     Route: 042
     Dates: start: 20090404, end: 20090423
  4. RITUXIMAB [Concomitant]
     Dosage: UNK UNK, UNK
     Dates: start: 20090408, end: 20090424

REACTIONS (3)
  - DRUG INEFFECTIVE [None]
  - REFUSAL OF TREATMENT BY PATIENT [None]
  - THROMBOCYTOPENIA [None]
